FAERS Safety Report 15504279 (Version 1)
Quarter: 2018Q4

REPORT INFORMATION
  Report Type: Spontaneous
  Country: US (occurrence: US)
  Receive Date: 20181009
  Receipt Date: 20181009
  Transmission Date: 20190205
  Serious: Yes (Disabling)
  Sender: FDA-Public Use
  Company Number: None

PATIENT
  Age: 75 Year
  Sex: Female
  Weight: 70.76 kg

DRUGS (17)
  1. AYRNOSEGEL [Concomitant]
  2. ASPER CREME W/ LIDOCAINE [Concomitant]
  3. CLONIDINE. [Concomitant]
     Active Substance: CLONIDINE
  4. PRADAXA [Concomitant]
     Active Substance: DABIGATRAN ETEXILATE MESYLATE
  5. ADVAIR HFA [Concomitant]
     Active Substance: FLUTICASONE PROPIONATE\SALMETEROL XINAFOATE
  6. ZYRTEC-D [Concomitant]
     Active Substance: CETIRIZINE HYDROCHLORIDE\PSEUDOEPHEDRINE HYDROCHLORIDE
  7. ACCU-CHEK GUIDE TEST STRIPS [Concomitant]
  8. JARDIANCE [Suspect]
     Active Substance: EMPAGLIFLOZIN
     Indication: TYPE 2 DIABETES MELLITUS
     Dosage: ?          QUANTITY:1 TABLET;?
     Route: 048
     Dates: start: 20171122, end: 20171130
  9. AMLODIPINE [Concomitant]
     Active Substance: AMLODIPINE BESYLATE
  10. ALLUPURINOL [Concomitant]
  11. POTASSIUM [Concomitant]
     Active Substance: POTASSIUM
  12. VITAMIN D3 [Concomitant]
     Active Substance: CHOLECALCIFEROL
  13. BLU-EMU WITH LIDOCAINE [Concomitant]
  14. CBD BALM [Concomitant]
  15. OCEAN SALINE NOSE SPRAY [Concomitant]
  16. VENTOLIN [Concomitant]
     Active Substance: ALBUTEROL SULFATE
  17. ACCU-CHEK FASTCLIX LANCETS [Concomitant]

REACTIONS (6)
  - Bone pain [None]
  - Renal cancer [None]
  - Arthralgia [None]
  - Pain [None]
  - Osteoarthritis [None]
  - Fine motor skill dysfunction [None]

NARRATIVE: CASE EVENT DATE: 20171130
